FAERS Safety Report 8822783 (Version 1)
Quarter: 2012Q4

REPORT INFORMATION
  Report Type: 
  Country: US (occurrence: US)
  Receive Date: 20121003
  Receipt Date: 20121003
  Transmission Date: 20130627
  Serious: Yes (Hospitalization)
  Sender: FDA-Public Use
  Company Number: US-VERTEX PHARMACEUTICAL INC.-2012-022017

PATIENT
  Sex: Male

DRUGS (3)
  1. VX-950 [Suspect]
     Indication: HEPATITIS C
     Dosage: 750 mg, tid
     Route: 048
     Dates: start: 20120712
  2. PEGASYS [Concomitant]
     Indication: HEPATITIS C
     Dosage: 180, weekly
     Route: 058
     Dates: start: 20120712
  3. RIBASPHERE [Concomitant]
     Indication: HEPATITIS C
     Dosage: 600 mg, bid
     Route: 048
     Dates: start: 20120712

REACTIONS (5)
  - Dehydration [Unknown]
  - Anaemia [Unknown]
  - Renal impairment [Unknown]
  - Abdominal pain upper [Unknown]
  - Dysgeusia [Unknown]
